FAERS Safety Report 6301433-9 (Version None)
Quarter: 2009Q3

REPORT INFORMATION
  Report Type: 
  Country: None (occurrence: None)
  Receive Date: 20090806
  Receipt Date: 20090806
  Transmission Date: 20100115
  Serious: Yes (Other)
  Sender: FDA-Public Use
  Company Number: None

PATIENT
  Age: 77 Year
  Sex: Female
  Weight: 45.3597 kg

DRUGS (3)
  1. LEVAQUIN [Suspect]
     Indication: ANIMAL BITE
     Dosage: ONE TABLET ONE DAILY
     Dates: start: 20090715
  2. CALCIUM [Concomitant]
  3. VITAMINS [Concomitant]

REACTIONS (4)
  - DIARRHOEA [None]
  - DIZZINESS [None]
  - HYPERHIDROSIS [None]
  - NAUSEA [None]
